FAERS Safety Report 10065273 (Version 1)
Quarter: 2014Q2

REPORT INFORMATION
  Report Type: Spontaneous
  Country: JP (occurrence: JP)
  Receive Date: 20140408
  Receipt Date: 20140408
  Transmission Date: 20141212
  Serious: Yes (Other)
  Sender: FDA-Public Use
  Company Number: JP-PFIZER INC-2014097342

PATIENT
  Age: 73 Year
  Sex: Female

DRUGS (2)
  1. LYRICA [Suspect]
     Indication: PAIN
     Route: 048
  2. WARFARIN [Concomitant]

REACTIONS (3)
  - Road traffic accident [Recovered/Resolved]
  - Behavioural and psychiatric symptoms of dementia [Unknown]
  - Dizziness [Unknown]
